FAERS Safety Report 9244939 (Version 13)
Quarter: 2016Q2

REPORT INFORMATION
  Report Type: Report from Study
  Country: AU (occurrence: AU)
  Receive Date: 20130422
  Receipt Date: 20160426
  Transmission Date: 20160815
  Serious: Yes (Hospitalization, Other)
  Sender: FDA-Public Use
  Company Number: PHHY2013AU038341

PATIENT
  Age: 65 Year
  Sex: Male

DRUGS (7)
  1. DIPHTHERIA TETANUS PERTUSSIS VACCINE [Concomitant]
     Indication: PRODUCT USED FOR UNKNOWN INDICATION
     Dosage: UNK
     Route: 065
     Dates: start: 20160223
  2. POLIO-VACCINE [Concomitant]
     Indication: PRODUCT USED FOR UNKNOWN INDICATION
     Dosage: UNK
     Route: 065
     Dates: start: 20160307
  3. SANDOSTATIN LAR DEPOT [Suspect]
     Active Substance: OCTREOTIDE ACETATE
     Indication: NEUROENDOCRINE TUMOUR
     Dosage: 30 MG, UNK
     Route: 030
  4. HEPATITIS B VACCINE [Concomitant]
     Active Substance: HEPATITIS B VIRUS VACCINE
     Indication: PRODUCT USED FOR UNKNOWN INDICATION
     Dosage: UNK
     Route: 065
     Dates: start: 20160307
  5. SANDOSTATIN LAR DEPOT [Suspect]
     Active Substance: OCTREOTIDE ACETATE
     Indication: CARCINOID SYNDROME
     Dosage: 30 MG, UNK
     Route: 030
  6. NEISSERIA MENINGITIDIS. [Concomitant]
     Active Substance: NEISSERIA MENINGITIDIS
     Indication: PRODUCT USED FOR UNKNOWN INDICATION
     Dosage: UNK
     Route: 065
     Dates: start: 20160307
  7. HAEMOPHILUS INFLUENZA TYPE B VACCINE [Concomitant]
     Active Substance: HAEMOPHILUS INFLUENZAE TYPE B
     Indication: PRODUCT USED FOR UNKNOWN INDICATION
     Dosage: UNK
     Route: 065
     Dates: start: 20160307

REACTIONS (12)
  - Platelet count decreased [Unknown]
  - Pulmonary function test abnormal [Recovering/Resolving]
  - Septic shock [Unknown]
  - Malignant neoplasm progression [Unknown]
  - Blast cell count increased [Unknown]
  - Acute myeloid leukaemia [Unknown]
  - Second primary malignancy [Unknown]
  - Renal failure [Unknown]
  - Metastases to lung [Unknown]
  - Graft versus host disease [Recovering/Resolving]
  - Haematological malignancy [Unknown]
  - Nasopharyngitis [Not Recovered/Not Resolved]

NARRATIVE: CASE EVENT DATE: 20130329
